FAERS Safety Report 12911015 (Version 27)
Quarter: 2024Q4

REPORT INFORMATION
  Report Type: Spontaneous
  Country: US (occurrence: US)
  Receive Date: 20161104
  Receipt Date: 20241128
  Transmission Date: 20250114
  Serious: Yes (Other)
  Sender: PFIZER
  Company Number: US-PFIZER INC-2016509776

PATIENT
  Age: 65 Year
  Sex: Female
  Weight: 56 kg

DRUGS (12)
  1. PREMARIN [Suspect]
     Active Substance: ESTROGENS, CONJUGATED
     Indication: Menopausal symptoms
     Dosage: UNK
     Route: 048
  2. PREMARIN [Suspect]
     Active Substance: ESTROGENS, CONJUGATED
     Indication: Hormone replacement therapy
     Dosage: 1.25 MG, 1X/DAY ( (1 EVERYDAY FOR HORMONE REPLACEMENT)
     Route: 048
     Dates: start: 1977
  3. PREMARIN [Suspect]
     Active Substance: ESTROGENS, CONJUGATED
     Indication: Hot flush
     Dosage: 1.25 MG, 1X/DAY
     Dates: start: 1997
  4. PREMARIN [Suspect]
     Active Substance: ESTROGENS, CONJUGATED
     Dosage: 1.25 MG, 1X/DAY
     Route: 048
     Dates: start: 20150101
  5. PREMARIN [Suspect]
     Active Substance: ESTROGENS, CONJUGATED
     Dosage: 1.25 (NO UNIT PROVIDED), DAILY
     Route: 048
     Dates: start: 201605
  6. PREMARIN [Suspect]
     Active Substance: ESTROGENS, CONJUGATED
     Dosage: 1.25 MG, DAILY
     Route: 048
     Dates: start: 20161230
  7. PREMARIN [Suspect]
     Active Substance: ESTROGENS, CONJUGATED
     Dosage: UNK, ALTERNATE DAY (EVERY OTHER DAY)
  8. PREMARIN [Suspect]
     Active Substance: ESTROGENS, CONJUGATED
     Dosage: 1.25 MG, DAILY
     Dates: start: 20181030
  9. PREMARIN [Suspect]
     Active Substance: ESTROGENS, CONJUGATED
     Dosage: 0.625 MG, DAILY
     Route: 048
  10. PREMARIN [Suspect]
     Active Substance: ESTROGENS, CONJUGATED
     Dosage: 1 TABLET (1.25 MG TOTAL) BY MOUTH IN THE MORNING
     Route: 048
     Dates: start: 20221223
  11. MAGNESIUM [Concomitant]
     Active Substance: MAGNESIUM
     Indication: Headache
     Dosage: 250 MG
  12. MAGNESIUM [Concomitant]
     Active Substance: MAGNESIUM
     Indication: Migraine

REACTIONS (25)
  - Suicidal ideation [Recovered/Resolved]
  - Drug ineffective [Not Recovered/Not Resolved]
  - Therapeutic response unexpected [Unknown]
  - Amnesia [Recovered/Resolved]
  - Malaise [Recovered/Resolved]
  - Osteosclerosis [Recovered/Resolved]
  - Bone disorder [Recovered/Resolved]
  - Headache [Recovered/Resolved]
  - Attention deficit hyperactivity disorder [Recovered/Resolved]
  - Arthralgia [Recovered/Resolved]
  - Mental disorder [Recovered/Resolved]
  - Feeling hot [Recovered/Resolved]
  - Dizziness [Recovered/Resolved]
  - Hypoacusis [Recovered/Resolved]
  - Night sweats [Recovered/Resolved]
  - Insomnia [Recovered/Resolved]
  - Migraine [Recovered/Resolved]
  - Feeling abnormal [Recovered/Resolved]
  - Fall [Recovered/Resolved]
  - Skin wrinkling [Recovered/Resolved]
  - Confusional state [Unknown]
  - Nervousness [Unknown]
  - Memory impairment [Not Recovered/Not Resolved]
  - Cardiac disorder [Unknown]
  - Intentional product misuse [Unknown]

NARRATIVE: CASE EVENT DATE: 20150116
